FAERS Safety Report 8336311-7 (Version None)
Quarter: 2012Q2

REPORT INFORMATION
  Report Type: 
  Country: None (occurrence: None)
  Receive Date: 20120504
  Receipt Date: 20120425
  Transmission Date: 20120825
  Serious: Yes (Other)
  Sender: FDA-Public Use
  Company Number: PHHY2012BR036187

PATIENT
  Age: 46 Year
  Sex: Male

DRUGS (3)
  1. CONVERSYL PLUS [Concomitant]
     Dosage: 1 DF, A DAY
  2. CALTREN [Concomitant]
     Dosage: 1 DF, UNK
  3. EXFORGE [Suspect]
     Indication: HYPERTENSION
     Dosage: 1 DF, (320 VALSAR/ 10 AMLODIP) DAILY

REACTIONS (2)
  - BLOOD GLUCOSE INCREASED [None]
  - POOR PERIPHERAL CIRCULATION [None]
